FAERS Safety Report 5749133-8 (Version None)
Quarter: 2008Q2

REPORT INFORMATION
  Report Type: 
  Country: None (occurrence: None)
  Receive Date: 20080522
  Receipt Date: 20080512
  Transmission Date: 20081010
  Serious: Yes (Death)
  Sender: FDA-Public Use
  Company Number: 2008JP001883

PATIENT
  Age: 80 Year
  Sex: Female

DRUGS (3)
  1. VESICARE [Suspect]
     Indication: HYPERTONIC BLADDER
     Dosage: 5 MG, UID/QD, ORAL
     Route: 048
     Dates: start: 20070217, end: 20070709
  2. TANATRIL (IMIDAPRIL HYDROCHLORIDE) [Concomitant]
  3. ISOSORBIDE MONONITRATE [Concomitant]

REACTIONS (1)
  - MARASMUS [None]
